FAERS Safety Report 10243187 (Version 2)
Quarter: 2014Q2

REPORT INFORMATION
  Report Type: Spontaneous
  Country: US (occurrence: None)
  Receive Date: 20140616
  Receipt Date: 20140630
  Transmission Date: 20141212
  Serious: Yes (Other)
  Sender: FDA-Public Use
  Company Number: US-015868

PATIENT
  Age: 71 Year
  Sex: Female
  Weight: 50.8 kg

DRUGS (6)
  1. PICO-SALAX [Suspect]
     Indication: BOWEL PREPARATION
     Dosage: 1ST PACK; 10 AM 20 MAY 2014, 2ND PACK: 6PM 20 MAY 2014
     Route: 048
  2. PICO-SALAX [Suspect]
     Dosage: 1ST PACK; 10 AM 20 MAY 2014, 2ND PACK: 6PM 20 MAY 2014
     Route: 048
  3. TRAVATAN [Concomitant]
  4. PRAVASTATIN [Concomitant]
  5. GABAPENTIN [Concomitant]
  6. ASPIRIN [Concomitant]

REACTIONS (6)
  - Retching [None]
  - Headache [None]
  - Abdominal pain upper [None]
  - Nausea [None]
  - Poor quality sleep [None]
  - Product reconstitution issue [None]
